FAERS Safety Report 14547073 (Version 2)
Quarter: 2018Q1

REPORT INFORMATION
  Report Type: Spontaneous
  Country: US (occurrence: US)
  Receive Date: 20180219
  Receipt Date: 20180328
  Transmission Date: 20180509
  Serious: Yes (Hospitalization, Other)
  Sender: FDA-Public Use
  Company Number: US-PFIZER INC-2018067815

PATIENT
  Age: 46 Year
  Sex: Female

DRUGS (1)
  1. MORPHINE SULFATE. [Suspect]
     Active Substance: MORPHINE SULFATE
     Dosage: UNK
     Route: 042
     Dates: start: 200208, end: 200208

REACTIONS (3)
  - Tremor [Unknown]
  - Hernia [Recovered/Resolved with Sequelae]
  - Drug hypersensitivity [Unknown]

NARRATIVE: CASE EVENT DATE: 200208
